FAERS Safety Report 18273674 (Version 2)
Quarter: 2020Q4

REPORT INFORMATION
  Report Type: Spontaneous
  Country: IN (occurrence: PE)
  Receive Date: 20200916
  Receipt Date: 20201002
  Transmission Date: 20210113
  Serious: Yes (Other)
  Sender: FDA-Public Use
  Company Number: PE-ELI_LILLY_AND_COMPANY-PE202009004517

PATIENT
  Age: 35 Year
  Sex: Male
  Weight: 65 kg

DRUGS (1)
  1. OLANZAPINE. [Suspect]
     Active Substance: OLANZAPINE
     Indication: SCHIZOPHRENIA
     Dosage: 10 MG, DAILY
     Route: 065

REACTIONS (3)
  - Hypotension [Recovered/Resolved]
  - Atrioventricular block first degree [Recovered/Resolved]
  - Sinus bradycardia [Recovered/Resolved]
